FAERS Safety Report 12690049 (Version 1)
Quarter: 2016Q3

REPORT INFORMATION
  Report Type: Spontaneous
  Country: ZA (occurrence: ZA)
  Receive Date: 20160826
  Receipt Date: 20160826
  Transmission Date: 20161109
  Serious: Yes (Other)
  Sender: FDA-Public Use
  Company Number: ZA-PFIZER INC-2016396028

PATIENT
  Age: 58 Year
  Sex: Female

DRUGS (4)
  1. TREPILINE /00002201/ [Concomitant]
     Active Substance: AMITRIPTYLINE
     Dosage: UNK
  2. MOLIPAXIN [Concomitant]
     Active Substance: TRAZODONE HYDROCHLORIDE
     Dosage: UNK
  3. EXSIRA [Suspect]
     Active Substance: DESVENLAFAXINE SUCCINATE
     Dosage: 50 MG, DAILY
     Route: 048
     Dates: start: 201511, end: 201602
  4. EXSIRA [Suspect]
     Active Substance: DESVENLAFAXINE SUCCINATE
     Dosage: 150 MG, DAILY
     Route: 048
     Dates: start: 2016

REACTIONS (3)
  - Suicidal behaviour [Recovered/Resolved]
  - Drug ineffective [Recovered/Resolved]
  - Depression [Recovered/Resolved]
